FAERS Safety Report 4510442-1 (Version None)
Quarter: 2004Q4

REPORT INFORMATION
  Report Type: 
  Country: None (occurrence: None)
  Receive Date: 20041119
  Receipt Date: 20041101
  Transmission Date: 20050328
  Serious: Yes (Death)
  Sender: FDA-Public Use
  Company Number: JP_041105061

PATIENT
  Age: 61 Year
  Sex: Female

DRUGS (4)
  1. ZYPREXA [Suspect]
     Dosage: 20 MG DAY
     Route: 048
  2. DIAZEPAM [Concomitant]
  3. BIPERIDEN HYDROCHLORIDE TAB [Concomitant]
  4. NITRAZEPAM [Concomitant]

REACTIONS (2)
  - CARDIO-RESPIRATORY ARREST [None]
  - CHOKING [None]
